FAERS Safety Report 6370540-7 (Version None)
Quarter: 2009Q3

REPORT INFORMATION
  Report Type: 
  Country: None (occurrence: None)
  Receive Date: 20090923
  Receipt Date: 20090918
  Transmission Date: 20100115
  Serious: Yes (Disabling)
  Sender: FDA-Public Use
  Company Number: A0808066A

PATIENT
  Age: 64 Year
  Sex: Female

DRUGS (2)
  1. BACTROBAN [Suspect]
     Indication: PROPHYLAXIS
     Dosage: 1APP PER DAY
     Route: 045
     Dates: start: 20090520, end: 20090525
  2. TOPROL-XL [Concomitant]

REACTIONS (3)
  - AGEUSIA [None]
  - DYSGEUSIA [None]
  - PAROSMIA [None]
